FAERS Safety Report 7515284-0 (Version None)
Quarter: 2011Q2

REPORT INFORMATION
  Report Type: 
  Country: None (occurrence: None)
  Receive Date: 20110425
  Receipt Date: 20100129
  Transmission Date: 20111010
  Serious: Yes (Other)
  Sender: FDA-Public Use
  Company Number: MC201000035

PATIENT

DRUGS (2)
  1. ANGIOMAX [Suspect]
     Dates: start: 20100101
  2. PLAVIX [Concomitant]

REACTIONS (2)
  - CHEST PAIN [None]
  - THROMBOSIS IN DEVICE [None]
